FAERS Safety Report 4593845-9 (Version None)
Quarter: 2005Q1

REPORT INFORMATION
  Report Type: 
  Country: None (occurrence: None)
  Receive Date: 20050301
  Receipt Date: 20050113
  Transmission Date: 20050727
  Serious: Yes (Hospitalization)
  Sender: FDA-Public Use
  Company Number: 200510164FR

PATIENT
  Age: 38 Year
  Sex: Male

DRUGS (3)
  1. GARDENALE [Suspect]
     Indication: EPILEPSY
     Route: 048
     Dates: start: 20041216, end: 20041226
  2. CLAFORAN [Suspect]
     Route: 042
     Dates: start: 20041217, end: 20041224
  3. DALACINE [Suspect]
     Indication: CEREBRAL TOXOPLASMOSIS
     Route: 042
     Dates: start: 20041215, end: 20041226

REACTIONS (1)
  - DRUG RASH WITH EOSINOPHILIA AND SYSTEMIC SYMPTOMS [None]
